FAERS Safety Report 7125295-5 (Version None)
Quarter: 2010Q4

REPORT INFORMATION
  Report Type: 
  Country: None (occurrence: None)
  Receive Date: 20101129
  Receipt Date: 20101118
  Transmission Date: 20110411
  Serious: Yes (Disabling)
  Sender: FDA-Public Use
  Company Number: DE-SANOFI-AVENTIS-2010SA068136

PATIENT
  Age: 56 Year
  Sex: Male
  Weight: 76 kg

DRUGS (2)
  1. MULTAQ [Suspect]
     Route: 048
     Dates: start: 20100629
  2. METOPROLOL SUCCINATE [Suspect]
     Dosage: DOSAGE: 2X1/2 TABLET DAILY.
     Route: 048
     Dates: start: 20100629

REACTIONS (2)
  - THROMBOPHLEBITIS [None]
  - VEIN DISORDER [None]
